FAERS Safety Report 14301651 (Version 1)
Quarter: 2017Q4

REPORT INFORMATION
  Report Type: Spontaneous
  Country: US (occurrence: US)
  Receive Date: 20171218
  Receipt Date: 20171218
  Transmission Date: 20180321
  Serious: Yes (Hospitalization)
  Sender: FDA-Public Use
  Company Number: None

PATIENT
  Age: 34 Year
  Sex: Female
  Weight: 60.3 kg

DRUGS (2)
  1. MICROGESTIN [Concomitant]
     Active Substance: ETHINYL ESTRADIOL\NORETHINDRONE ACETATE
  2. ARIPIPRAZOLE. [Suspect]
     Active Substance: ARIPIPRAZOLE
     Indication: FATIGUE
     Dosage: ?          QUANTITY:1 TABLET(S);?
     Route: 048

REACTIONS (9)
  - Ocular icterus [None]
  - Sleep attacks [None]
  - Toxicity to various agents [None]
  - Blood bilirubin increased [None]
  - Impaired work ability [None]
  - Malaise [None]
  - Loss of consciousness [None]
  - Yellow skin [None]
  - Hepatic enzyme increased [None]

NARRATIVE: CASE EVENT DATE: 20171206
